FAERS Safety Report 5455069-2 (Version None)
Quarter: 2007Q3

REPORT INFORMATION
  Report Type: 
  Country: None (occurrence: None)
  Receive Date: 20070913
  Receipt Date: 20070823
  Transmission Date: 20080115
  Serious: Yes (Hospitalization)
  Sender: FDA-Public Use
  Company Number: 6037323

PATIENT
  Age: 60 Year
  Sex: Male

DRUGS (1)
  1. CLARITHROMYCIN [Suspect]
     Indication: PYREXIA
     Dosage: 500 MG; 9 MONTH LATER

REACTIONS (2)
  - AGRANULOCYTOSIS [None]
  - MONOCYTOSIS [None]
